FAERS Safety Report 20371251 (Version 2)
Quarter: 2022Q3

REPORT INFORMATION
  Report Type: Spontaneous
  Country: US (occurrence: US)
  Receive Date: 20220124
  Receipt Date: 20220808
  Transmission Date: 20221027
  Serious: Yes (Other)
  Sender: FDA-Public Use
  Company Number: US-GILEAD-2022-0565962

PATIENT
  Sex: Female
  Weight: 91.61 kg

DRUGS (44)
  1. TRUVADA [Suspect]
     Active Substance: EMTRICITABINE\TENOFOVIR DISOPROXIL FUMARATE
     Indication: HIV infection
     Dosage: UNK
     Route: 048
     Dates: start: 2010, end: 201804
  2. BIKTARVY [Concomitant]
     Active Substance: BICTEGRAVIR SODIUM\EMTRICITABINE\TENOFOVIR ALAFENAMIDE FUMARATE
  3. DESCOVY [Concomitant]
     Active Substance: EMTRICITABINE\TENOFOVIR ALAFENAMIDE FUMARATE
  4. ISENTRESS [Concomitant]
     Active Substance: RALTEGRAVIR POTASSIUM
  5. KALETRA [Concomitant]
     Active Substance: LOPINAVIR\RITONAVIR
  6. BUPROPION [Concomitant]
     Active Substance: BUPROPION
  7. MONTELUKAST [Concomitant]
     Active Substance: MONTELUKAST SODIUM
  8. CLOTRIMAZOLE [Concomitant]
     Active Substance: CLOTRIMAZOLE
  9. VITAMINS NOS [Concomitant]
     Active Substance: VITAMINS
  10. VALACYCLOVIR [Concomitant]
     Active Substance: VALACYCLOVIR HYDROCHLORIDE
  11. VENTOLIN [Concomitant]
     Active Substance: ALBUTEROL SULFATE
  12. LOSARTAN [Concomitant]
     Active Substance: LOSARTAN
  13. ASPIRIN [Concomitant]
     Active Substance: ASPIRIN
  14. ATORVASTATIN [Concomitant]
     Active Substance: ATORVASTATIN
  15. FLOVENT [Concomitant]
     Active Substance: FLUTICASONE PROPIONATE
  16. OMEPRAZOLE [Concomitant]
     Active Substance: OMEPRAZOLE
  17. Q-TUSSIN [Concomitant]
     Active Substance: GUAIFENESIN
  18. CLONAZEPAM [Concomitant]
     Active Substance: CLONAZEPAM
  19. DULERA [Concomitant]
     Active Substance: FORMOTEROL FUMARATE DIHYDRATE\MOMETASONE FUROATE
  20. TUDORZA PRESSAIR [Concomitant]
     Active Substance: ACLIDINIUM BROMIDE
  21. JINTELI [Concomitant]
     Active Substance: ETHINYL ESTRADIOL\NORETHINDRONE ACETATE
  22. DOCUSATE [Concomitant]
     Active Substance: DOCUSATE
  23. SENNA LAXATIVE [Concomitant]
     Active Substance: SENNOSIDES
  24. VITAMIN C [Concomitant]
     Active Substance: ASCORBIC ACID
  25. BACTRIM [Concomitant]
     Active Substance: SULFAMETHOXAZOLE\TRIMETHOPRIM
  26. NITROFURANTOIN [Concomitant]
     Active Substance: NITROFURANTOIN
  27. INCRUSE ELLIPTA [Concomitant]
     Active Substance: UMECLIDINIUM BROMIDE
  28. AZITHROMYCIN [Concomitant]
     Active Substance: AZITHROMYCIN
  29. HYDROXYZINE [Concomitant]
     Active Substance: HYDROXYZINE HYDROCHLORIDE
  30. SERTRALINE [Concomitant]
     Active Substance: SERTRALINE HYDROCHLORIDE
  31. ARIPIPRAZOLE [Concomitant]
     Active Substance: ARIPIPRAZOLE
  32. ZOLOFT [Concomitant]
     Active Substance: SERTRALINE HYDROCHLORIDE
  33. XANAX [Concomitant]
     Active Substance: ALPRAZOLAM
  34. NICOTINE TRANSDERMAL SYSTEM [Concomitant]
     Active Substance: NICOTINE
  35. TOPIRAMATE [Concomitant]
     Active Substance: TOPIRAMATE
  36. AMOXICILLIN [Concomitant]
     Active Substance: AMOXICILLIN
  37. AZELASTINE [Concomitant]
     Active Substance: AZELASTINE
  38. ZOLPIDEM [Concomitant]
     Active Substance: ZOLPIDEM TARTRATE
  39. PILOCARPINE [Concomitant]
     Active Substance: PILOCARPINE
  40. SYMBICORT [Concomitant]
     Active Substance: BUDESONIDE\FORMOTEROL FUMARATE DIHYDRATE
  41. FISH OIL [Concomitant]
     Active Substance: FISH OIL
  42. VITAMIN B12 [Concomitant]
     Active Substance: CYANOCOBALAMIN
  43. VITAMIN B3 [Concomitant]
     Active Substance: NIACIN
  44. DIETARY SUPPLEMENT\HERBALS\MILK THISTLE [Concomitant]
     Active Substance: DIETARY SUPPLEMENT\HERBALS\MILK THISTLE

REACTIONS (13)
  - Osteoporosis [Not Recovered/Not Resolved]
  - Renal injury [Unknown]
  - Sitting disability [Not Recovered/Not Resolved]
  - Musculoskeletal stiffness [Not Recovered/Not Resolved]
  - Muscle spasms [Not Recovered/Not Resolved]
  - Arthralgia [Not Recovered/Not Resolved]
  - Muscular weakness [Not Recovered/Not Resolved]
  - Bone demineralisation [Unknown]
  - Loss of personal independence in daily activities [Not Recovered/Not Resolved]
  - Emotional distress [Not Recovered/Not Resolved]
  - Anhedonia [Not Recovered/Not Resolved]
  - Anxiety [Not Recovered/Not Resolved]
  - Pain [Not Recovered/Not Resolved]

NARRATIVE: CASE EVENT DATE: 20160101
